FAERS Safety Report 6011108-1 (Version None)
Quarter: 2008Q4

REPORT INFORMATION
  Report Type: 
  Country: None (occurrence: None)
  Receive Date: 20081216
  Receipt Date: 20081208
  Transmission Date: 20090506
  Serious: Yes (Other)
  Sender: FDA-Public Use
  Company Number: CHPA2008US21969

PATIENT
  Age: 60 Year
  Sex: Male

DRUGS (2)
  1. MAALOX ANTIACID/ANTIGAS MAX QDTABS ASST (NCH) (CALCIUM CARBONATE, SIME [Suspect]
     Indication: DYSPEPSIA
     Dosage: 4 DF, IN 24 HOURS, ORAL
     Route: 048
  2. ASPIRIN [Concomitant]

REACTIONS (3)
  - DEAFNESS [None]
  - INTENTIONAL DRUG MISUSE [None]
  - TINNITUS [None]
